FAERS Safety Report 6849014-2 (Version None)
Quarter: 2010Q3

REPORT INFORMATION
  Report Type: 
  Country: None (occurrence: None)
  Receive Date: 20100716
  Receipt Date: 20070925
  Transmission Date: 20110219
  Serious: Yes (Other)
  Sender: FDA-Public Use
  Company Number: US-PFIZER INC-2007081505

PATIENT
  Age: 25 Year
  Sex: Male
  Weight: 79.5 kg

DRUGS (1)
  1. CHANTIX [Suspect]
     Indication: SMOKING CESSATION THERAPY
     Dates: start: 20070701

REACTIONS (3)
  - ANXIETY [None]
  - FEELING ABNORMAL [None]
  - FLATULENCE [None]
